FAERS Safety Report 5798898-8 (Version None)
Quarter: 2008Q2

REPORT INFORMATION
  Report Type: 
  Country: None (occurrence: None)
  Receive Date: 20080630
  Receipt Date: 20080616
  Transmission Date: 20081010
  Serious: Yes (Death, Hospitalization)
  Sender: FDA-Public Use
  Company Number: GXKR2008NL05859

PATIENT
  Age: 35 Year
  Sex: Female

DRUGS (3)
  1. VERAPAMIL [Suspect]
  2. CITALOPRAM HYDROBROMIDE [Suspect]
  3. BENZODIAZEPINES (NO INGREDIENTS/SUBSTANCES) [Suspect]

REACTIONS (7)
  - CARDIAC ARREST [None]
  - DRUG INTERACTION [None]
  - DRUG TOXICITY [None]
  - ENCEPHALOPATHY [None]
  - HYPOKALAEMIA [None]
  - OVERDOSE [None]
  - STAPHYLOCOCCAL SEPSIS [None]
